FAERS Safety Report 5168519-6 (Version None)
Quarter: 2006Q4

REPORT INFORMATION
  Report Type: 
  Country: None (occurrence: None)
  Receive Date: 20061208
  Receipt Date: 20061205
  Transmission Date: 20070319
  Serious: Yes (Death)
  Sender: FDA-Public Use
  Company Number: AT-BOEHRINGER INGELHEIM PHARMACEUTICALS, INC.-2006-BE-00088BE

PATIENT
  Sex: Female

DRUGS (1)
  1. APTIVUS [Suspect]

REACTIONS (1)
  - HEPATITIS [None]
